FAERS Safety Report 6317718-6 (Version None)
Quarter: 2009Q3

REPORT INFORMATION
  Report Type: 
  Country: None (occurrence: None)
  Receive Date: 20090819
  Receipt Date: 20090819
  Transmission Date: 20100115
  Serious: Yes (Death)
  Sender: FDA-Public Use
  Company Number: None

PATIENT
  Age: 35 Year
  Sex: Female
  Weight: 45.3597 kg

DRUGS (1)
  1. METHADONE [Suspect]

REACTIONS (2)
  - DYSARTHRIA [None]
  - EUPHORIC MOOD [None]
